FAERS Safety Report 7380360-2 (Version None)
Quarter: 2011Q1

REPORT INFORMATION
  Report Type: 
  Country: None (occurrence: None)
  Receive Date: 20110329
  Receipt Date: 20091113
  Transmission Date: 20110831
  Serious: Yes (Death, Hospitalization, Other)
  Sender: FDA-Public Use
  Company Number: US-BAYER-200939668NA

PATIENT
  Sex: Male
  Weight: 101.13 kg

DRUGS (30)
  1. LASIX [Concomitant]
     Dosage: 200 MG, OVER 6 HOURS
     Route: 042
     Dates: start: 20040702, end: 20040702
  2. RED BLOOD CELLS [Concomitant]
     Dosage: 2 UNITS
     Route: 042
     Dates: start: 20040702, end: 20040702
  3. TRASYLOL [Suspect]
     Dosage: LOADING DOSE 100 CC
     Route: 042
     Dates: start: 20040628, end: 20040628
  4. HUMALOG [Concomitant]
     Indication: DIABETES MELLITUS
     Dosage: 8 U, BEFORE EACH MEAL DAILY
     Route: 058
  5. LASIX [Concomitant]
     Dosage: 400 MG, OVER 24 HOURS
     Route: 042
     Dates: start: 20040703, end: 20040704
  6. ZOCOR [Concomitant]
     Dosage: 10 MG, QD
     Route: 048
  7. PRILOSEC [Concomitant]
     Dosage: 20 MG, QD
     Route: 048
  8. DDAVP [Concomitant]
     Dosage: UNK
     Route: 042
     Dates: start: 20040628
  9. RED BLOOD CELLS [Concomitant]
     Dosage: 2 UNITS
     Route: 010
     Dates: start: 20040708, end: 20040708
  10. ROCEPHIN [Concomitant]
     Dosage: UNK
  11. LASIX [Concomitant]
     Dosage: 20 MG, QD
     Route: 048
  12. LASIX [Concomitant]
     Dosage: 500 MG, OVER 24 HOURS
     Route: 042
     Dates: start: 20040705, end: 20040706
  13. ASPIRIN [Concomitant]
     Dosage: 325 MG, QD
     Route: 048
  14. LEVOTHYROXINE [Concomitant]
     Dosage: 0.075 MG, QD
     Route: 048
  15. FELODIPINE [Concomitant]
     Dosage: 10 MG, QD
     Route: 048
  16. DOBUTAMINE [Concomitant]
     Dosage: UNK
     Route: 042
     Dates: start: 20040628
  17. LASIX [Concomitant]
     Dosage: 200 MG, OVER 24 HOURS
     Dates: start: 20040630, end: 20040701
  18. RED BLOOD CELLS [Concomitant]
     Dosage: 3 UNITS
     Route: 042
     Dates: start: 20040628, end: 20040628
  19. TRASYLOL [Suspect]
     Dosage: 25 CC/HOUR
     Route: 041
     Dates: start: 20040628, end: 20040628
  20. LISINOPRIL [Concomitant]
     Dosage: 40 MG, QD
     Route: 048
  21. LANTUS [Concomitant]
     Dosage: 22 AT BEDTIME
     Route: 058
  22. PAPAVERINE [Concomitant]
     Dosage: UNK
     Route: 042
     Dates: start: 20040628, end: 20040628
  23. PROTAMINE SULFATE [Concomitant]
     Dosage: UNK
     Route: 042
     Dates: start: 20040628, end: 20040628
  24. CEFUROXIME [Concomitant]
     Dosage: UNK UNK, BID
     Dates: start: 20040630
  25. ALEVE (CAPLET) [Concomitant]
     Dosage: UNK
  26. TOPROL-XL [Concomitant]
     Dosage: 50 MG, HALF TWICE A DAY
     Route: 048
  27. RED BLOOD CELLS [Concomitant]
     Dosage: 4 UNITS
     Route: 010
     Dates: start: 20040715, end: 20040715
  28. TRASYLOL [Suspect]
     Indication: CORONARY ARTERY BYPASS
     Dosage: PUMP PRIME 1 MILLION KIU
     Route: 050
     Dates: start: 20040628, end: 20040628
  29. LASIX [Concomitant]
     Dosage: 400 MG, OVER 24 HOURS
     Route: 042
     Dates: start: 20040701, end: 20040702
  30. VANCOMYCIN [Concomitant]
     Dosage: 1 G, ONCE
     Route: 042
     Dates: start: 20040701

REACTIONS (13)
  - ANHEDONIA [None]
  - RENAL FAILURE [None]
  - DEATH [None]
  - STRESS [None]
  - EMOTIONAL DISTRESS [None]
  - PAIN [None]
  - INJURY [None]
  - UNEVALUABLE EVENT [None]
  - ANXIETY [None]
  - RENAL IMPAIRMENT [None]
  - RENAL INJURY [None]
  - FEAR [None]
  - MULTI-ORGAN FAILURE [None]
